FAERS Safety Report 4715382-0 (Version None)
Quarter: 2005Q3

REPORT INFORMATION
  Report Type: 
  Country: None (occurrence: None)
  Receive Date: 20050715
  Receipt Date: 20050404
  Transmission Date: 20060218
  Serious: Yes (Hospitalization)
  Sender: FDA-Public Use
  Company Number: US-MERCK-0504USA00702

PATIENT
  Age: 58 Year
  Sex: Male
  Weight: 84 kg

DRUGS (2)
  1. VIOXX [Suspect]
     Indication: OSTEOARTHRITIS
     Route: 048
     Dates: start: 19990101, end: 20030410
  2. PREVACID [Concomitant]
     Route: 065

REACTIONS (21)
  - ACUTE MYOCARDIAL INFARCTION [None]
  - ANEURYSM [None]
  - BRADYCARDIA [None]
  - CARDIAC ARREST [None]
  - CARDIAC FAILURE [None]
  - CARDIAC FUNCTION DISTURBANCE POSTOPERATIVE [None]
  - COMPLICATIONS OF TRANSPLANT SURGERY [None]
  - CORONARY ARTERY DISEASE [None]
  - CORONARY ARTERY OCCLUSION [None]
  - CORONARY ARTERY STENOSIS [None]
  - GASTRITIS [None]
  - HAEMORRHAGE [None]
  - HEART TRANSPLANT [None]
  - HYPOTENSION [None]
  - LUNG ABSCESS [None]
  - MEDIASTINAL HAEMORRHAGE [None]
  - OSTEOMYELITIS [None]
  - PERICARDIAL HAEMORRHAGE [None]
  - PNEUMONIA [None]
  - PULMONARY OEDEMA [None]
  - URINARY TRACT INFECTION [None]
